FAERS Safety Report 6871111-6 (Version None)
Quarter: 2010Q3

REPORT INFORMATION
  Report Type: 
  Country: None (occurrence: None)
  Receive Date: 20100723
  Receipt Date: 20100714
  Transmission Date: 20110219
  Serious: Yes (Hospitalization, Other)
  Sender: FDA-Public Use
  Company Number: US-ELI_LILLY_AND_COMPANY-US201006001795

PATIENT
  Age: 50 Year
  Sex: Female

DRUGS (7)
  1. EFFIENT [Suspect]
     Dosage: 10 MG, DAILY (1/D)
     Dates: start: 20090101
  2. CYMBALTA [Suspect]
     Indication: DEPRESSION
     Dosage: 20 MG, DAILY (1/D)
     Dates: start: 20080101, end: 20100401
  3. ZOCOR [Concomitant]
     Dosage: 20 MG, UNK
  4. ASPIRIN [Concomitant]
     Dosage: 81 MG, UNK
  5. NORVASC [Concomitant]
     Dosage: 7.5 MG, UNK
  6. ZYRTEC [Concomitant]
     Dosage: 20 MG, UNK
  7. NITROGLYCERIN [Concomitant]
     Dosage: UNK, AS NEEDED

REACTIONS (14)
  - CONTUSION [None]
  - DEVICE FAILURE [None]
  - DRUG DOSE OMISSION [None]
  - DRUG WITHDRAWAL SYNDROME [None]
  - EPISTAXIS [None]
  - FATIGUE [None]
  - GASTROINTESTINAL HAEMORRHAGE [None]
  - HAEMORRHAGE [None]
  - HYPOAESTHESIA ORAL [None]
  - MOUTH HAEMORRHAGE [None]
  - MYOCARDIAL INFARCTION [None]
  - PAIN IN EXTREMITY [None]
  - PARAESTHESIA [None]
  - TOOTH FRACTURE [None]
